FAERS Safety Report 24773675 (Version 1)
Quarter: 2024Q4

REPORT INFORMATION
  Report Type: Spontaneous
  Country: EG (occurrence: EG)
  Receive Date: 20241225
  Receipt Date: 20241225
  Transmission Date: 20250115
  Serious: Yes (Other)
  Sender: HIKMA
  Company Number: EG-HIKMA PHARMACEUTICALS-EG-H14001-24-11746

PATIENT
  Age: 75 Year
  Sex: Male
  Weight: 60 kg

DRUGS (8)
  1. IRINOTECAN [Suspect]
     Active Substance: IRINOTECAN
     Dosage: 288 MILLIGRAM, QOW
     Route: 042
     Dates: start: 20241122
  2. IRINOTECAN [Suspect]
     Active Substance: IRINOTECAN
     Indication: Pancreatic carcinoma
     Dosage: 288 MILLIGRAM, QOW
     Route: 041
     Dates: start: 20241027
  3. LEUCOVORIN CALCIUM [Suspect]
     Active Substance: LEUCOVORIN CALCIUM
     Dosage: 640 MILLIGRAM, QOW
     Route: 042
     Dates: start: 20241122
  4. LEUCOVORIN CALCIUM [Suspect]
     Active Substance: LEUCOVORIN CALCIUM
     Indication: Pancreatic carcinoma
     Dosage: 640 MILLIGRAM, QOW
     Route: 041
     Dates: start: 20241027
  5. OXALIPLATIN [Suspect]
     Active Substance: OXALIPLATIN
     Dosage: 136 MILLIGRAM, 3W
     Route: 042
     Dates: start: 20241122
  6. OXALIPLATIN [Suspect]
     Active Substance: OXALIPLATIN
     Indication: Pancreatic carcinoma
     Dosage: 136 MILLIGRAM, 3W
     Route: 041
     Dates: start: 20241027
  7. FLUOROURACIL [Suspect]
     Active Substance: FLUOROURACIL
     Dosage: 4480 MILLIGRAM, QOW
     Route: 042
     Dates: start: 20241122
  8. FLUOROURACIL [Suspect]
     Active Substance: FLUOROURACIL
     Indication: Pancreatic carcinoma
     Dosage: 4480 MILLIGRAM, QOW
     Route: 041
     Dates: start: 20241027

REACTIONS (2)
  - Neutropenia [Recovered/Resolved]
  - Leukopenia [Recovered/Resolved]
